FAERS Safety Report 14220684 (Version 1)
Quarter: 2017Q4

REPORT INFORMATION
  Report Type: Spontaneous
  Country: RU (occurrence: RU)
  Receive Date: 20171124
  Receipt Date: 20171124
  Transmission Date: 20180321
  Serious: Yes (Other)
  Sender: FDA-Public Use
  Company Number: RU-ASTRAZENECA-2017SE58234

PATIENT
  Age: 64 Year
  Sex: Female
  Weight: 84 kg

DRUGS (10)
  1. INSULIN [Concomitant]
     Active Substance: INSULIN NOS
  2. BRILINTA [Suspect]
     Active Substance: TICAGRELOR
     Indication: MYOCARDIAL INFARCTION
     Route: 048
     Dates: start: 20170122, end: 20171107
  3. PERINEVA [Concomitant]
     Active Substance: PERINDOPRIL ERBUMINE
  4. PRESTARIUM A [Concomitant]
     Active Substance: PERINDOPRIL ARGININE
  5. ATORVASTATIN [Concomitant]
     Active Substance: ATORVASTATIN
  6. TRIMETAZIDINE [Concomitant]
     Active Substance: TRIMETAZIDINE
  7. CARVEDILOL. [Concomitant]
     Active Substance: CARVEDILOL
  8. THROMBO ASS [Concomitant]
     Active Substance: ASPIRIN
  9. IVABRADINE [Concomitant]
     Active Substance: IVABRADINE
  10. ROSUVASTATIN. [Concomitant]
     Active Substance: ROSUVASTATIN

REACTIONS (5)
  - Chest pain [Not Recovered/Not Resolved]
  - Contusion [Recovered/Resolved]
  - Malaise [Not Recovered/Not Resolved]
  - Vascular stent stenosis [Not Recovered/Not Resolved]
  - Dyspnoea [Not Recovered/Not Resolved]

NARRATIVE: CASE EVENT DATE: 201705
